FAERS Safety Report 5682805-2 (Version None)
Quarter: 2008Q1

REPORT INFORMATION
  Report Type: 
  Country: None (occurrence: None)
  Receive Date: 20080325
  Receipt Date: 20080313
  Transmission Date: 20080703
  Serious: Yes (Hospitalization)
  Sender: FDA-Public Use
  Company Number: 2008006503

PATIENT
  Age: 5 Year

DRUGS (1)
  1. VISINE A.C. (ZINC SULFATE, TETRYZOLINE) [Suspect]
     Dosage: ORAL
     Route: 048
     Dates: start: 20080313, end: 20080313

REACTIONS (1)
  - ACCIDENTAL DRUG INTAKE BY CHILD [None]
